FAERS Safety Report 9650663 (Version 7)
Quarter: 2013Q4

REPORT INFORMATION
  Report Type: Report from Study
  Country: CA (occurrence: CA)
  Receive Date: 20131029
  Receipt Date: 20131212
  Transmission Date: 20140711
  Serious: Yes (Hospitalization, Other)
  Sender: FDA-Public Use
  Company Number: CA-ROCHE-1228298

PATIENT
  Age: 73 Year
  Sex: Male
  Weight: 66.8 kg

DRUGS (13)
  1. RITUXAN [Suspect]
     Indication: RHEUMATOID ARTHRITIS
     Dosage: DAY 1 AND DAY 15, LAST DOSE ON 21/MAY/2013.
     Route: 042
     Dates: start: 20130503
  2. PREDNISONE [Suspect]
     Indication: PRODUCT USED FOR UNKNOWN INDICATION
     Route: 065
     Dates: end: 2013
  3. PREDNISONE [Suspect]
     Route: 065
     Dates: end: 20131104
  4. DIPHENHYDRAMINE HCL [Concomitant]
     Indication: PREMEDICATION
     Route: 048
     Dates: start: 20130503
  5. ACETAMINOPHEN [Concomitant]
     Indication: PREMEDICATION
     Route: 048
     Dates: start: 20130503
  6. METHYLPREDNISOLONE [Concomitant]
     Indication: PREMEDICATION
     Route: 042
     Dates: start: 20130503
  7. PROPAFENONE [Concomitant]
  8. ADALAT [Concomitant]
  9. ATENOLOL [Concomitant]
  10. TERAZOSIN [Concomitant]
  11. ASA [Concomitant]
  12. FOSAMAX [Concomitant]
  13. HYZAAR (CANADA) [Concomitant]

REACTIONS (19)
  - Osteomyelitis [Recovering/Resolving]
  - Infection [Unknown]
  - Immune system disorder [Unknown]
  - Blood pressure increased [Unknown]
  - Drug ineffective [Unknown]
  - Rheumatoid arthritis [Not Recovered/Not Resolved]
  - Arthralgia [Not Recovered/Not Resolved]
  - Musculoskeletal stiffness [Not Recovered/Not Resolved]
  - Therapeutic response decreased [Not Recovered/Not Resolved]
  - Synovitis [Unknown]
  - Arthralgia [Unknown]
  - Joint range of motion decreased [Unknown]
  - Rheumatoid nodule [Unknown]
  - Tenderness [Unknown]
  - Joint swelling [Unknown]
  - Musculoskeletal pain [Not Recovered/Not Resolved]
  - Heart rate increased [Unknown]
  - Arthralgia [Unknown]
  - Movement disorder [Unknown]
